FAERS Safety Report 7449142-7 (Version None)
Quarter: 2011Q2

REPORT INFORMATION
  Report Type: 
  Country: None (occurrence: None)
  Receive Date: 20110502
  Receipt Date: 20110421
  Transmission Date: 20111010
  Serious: Yes (Hospitalization)
  Sender: FDA-Public Use
  Company Number: US-BIOGENIDEC-2010BI021863

PATIENT
  Age: 66 Year
  Sex: Female

DRUGS (1)
  1. TYSABRI [Suspect]
     Indication: MULTIPLE SCLEROSIS
     Route: 042
     Dates: start: 20090417, end: 20101006

REACTIONS (6)
  - FALL [None]
  - PAIN IN EXTREMITY [None]
  - CYST [None]
  - GAIT DISTURBANCE [None]
  - THROMBOSIS [None]
  - ABASIA [None]
